FAERS Safety Report 13288129 (Version 1)
Quarter: 2017Q1

REPORT INFORMATION
  Report Type: Report from Study
  Country: US (occurrence: US)
  Receive Date: 20170302
  Receipt Date: 20170302
  Transmission Date: 20170428
  Serious: Yes (Hospitalization)
  Sender: FDA-Public Use
  Company Number: US-EXELIXIS-CABO-17008121

PATIENT
  Sex: Male

DRUGS (11)
  1. LIDODERM [Concomitant]
     Active Substance: LIDOCAINE
  2. OXYCODONE [Concomitant]
     Active Substance: OXYCODONE
  3. PROTONIX [Concomitant]
     Active Substance: PANTOPRAZOLE SODIUM
  4. LACTULOSE. [Concomitant]
     Active Substance: LACTULOSE
  5. ZOFRAN [Concomitant]
     Active Substance: ONDANSETRON HYDROCHLORIDE
  6. DEXAMETHASONE. [Concomitant]
     Active Substance: DEXAMETHASONE
  7. CABOMETYX [Suspect]
     Active Substance: CABOZANTINIB S-MALATE
     Indication: RENAL CANCER
     Dosage: 60 MG, QD
     Route: 048
     Dates: start: 20170105
  8. LANTUS [Concomitant]
     Active Substance: INSULIN GLARGINE
  9. LIPITOR [Concomitant]
     Active Substance: ATORVASTATIN CALCIUM
  10. FENTANYL. [Concomitant]
     Active Substance: FENTANYL
  11. FLUCONAZOLE. [Concomitant]
     Active Substance: FLUCONAZOLE

REACTIONS (9)
  - Skin ulcer [Unknown]
  - Gait disturbance [Unknown]
  - Oral pain [Unknown]
  - Nausea [Unknown]
  - Dizziness [Unknown]
  - Pain of skin [Not Recovered/Not Resolved]
  - Device related infection [Unknown]
  - Balance disorder [Unknown]
  - Skin discolouration [Not Recovered/Not Resolved]
